FAERS Safety Report 5600131-4 (Version None)
Quarter: 2008Q1

REPORT INFORMATION
  Report Type: 
  Country: None (occurrence: None)
  Receive Date: 20080123
  Receipt Date: 20080118
  Transmission Date: 20080703
  Serious: Yes (Other)
  Sender: FDA-Public Use
  Company Number: B0504378A

PATIENT
  Sex: Female

DRUGS (3)
  1. KIVEXA [Suspect]
     Indication: HIV INFECTION
     Route: 065
  2. COMBIVIR [Concomitant]
     Indication: HIV INFECTION
     Route: 065
  3. VIRAMUNE [Concomitant]
     Indication: HIV INFECTION
     Route: 065

REACTIONS (3)
  - BLOOD BILIRUBIN INCREASED [None]
  - HEPATITIS [None]
  - TRANSAMINASES INCREASED [None]
